FAERS Safety Report 9451843 (Version 2)
Quarter: 2013Q3

REPORT INFORMATION
  Report Type: Spontaneous
  Country: US (occurrence: US)
  Receive Date: 20130812
  Receipt Date: 20130814
  Transmission Date: 20140515
  Serious: No
  Sender: FDA-Public Use
  Company Number: US-009507513-1308USA002810

PATIENT
  Sex: Female

DRUGS (2)
  1. ASMANEX TWISTHALER [Suspect]
     Indication: ASTHMA
     Dosage: 220 MICROGRAM, 1 PUFF, TWICE DAILY
     Route: 055
     Dates: start: 20130729
  2. ASMANEX TWISTHALER [Suspect]
     Indication: CHRONIC OBSTRUCTIVE PULMONARY DISEASE

REACTIONS (7)
  - Poor quality sleep [Recovering/Resolving]
  - Wheezing [Recovering/Resolving]
  - Accidental exposure to product [Unknown]
  - Incorrect dose administered [Unknown]
  - Drug ineffective [Recovering/Resolving]
  - Off label use [Recovering/Resolving]
  - Product quality issue [Unknown]
